FAERS Safety Report 9175774 (Version 3)
Quarter: 2014Q1

REPORT INFORMATION
  Report Type: Spontaneous
  Country: US (occurrence: US)
  Receive Date: 20130320
  Receipt Date: 20140130
  Transmission Date: 20141002
  Serious: Yes (Hospitalization, Disabling, Other)
  Sender: FDA-Public Use
  Company Number: US-MERCK-1303USA009161

PATIENT
  Sex: Female
  Weight: 76.64 kg

DRUGS (4)
  1. FOSAMAX [Suspect]
     Indication: OSTEOPENIA
     Dosage: 35 MG, QW
     Route: 048
     Dates: start: 2001, end: 20070208
  2. FOSAMAX [Suspect]
     Indication: OSTEOPOROSIS
     Dosage: 70 MG, UNK
     Route: 048
     Dates: start: 20070208, end: 20080214
  3. BONIVA [Suspect]
     Indication: OSTEOPENIA
     Dosage: 150 MG, UNK
     Route: 048
     Dates: start: 20080214, end: 20110321
  4. BONIVA [Suspect]
     Indication: OSTEOPOROSIS

REACTIONS (35)
  - Femur fracture [Unknown]
  - Intramedullary rod insertion [Unknown]
  - Removal of internal fixation [Recovering/Resolving]
  - Femur fracture [Unknown]
  - Arthrotomy [Unknown]
  - Internal fixation of fracture [Unknown]
  - Radius fracture [Unknown]
  - Intramedullary rod insertion [Unknown]
  - Surgery [Unknown]
  - Humerus fracture [Recovered/Resolved]
  - Low turnover osteopathy [Unknown]
  - Medical device pain [Recovering/Resolving]
  - Fall [Unknown]
  - Fall [Unknown]
  - Haemorrhagic anaemia [Recovering/Resolving]
  - Leukocytosis [Recovered/Resolved]
  - Cystocele [Unknown]
  - Fibrocystic breast disease [Unknown]
  - Adverse event [Unknown]
  - Vitamin D deficiency [Unknown]
  - Migraine [Unknown]
  - Spinal osteoarthritis [Unknown]
  - Spinal column stenosis [Unknown]
  - Anxiety disorder [Unknown]
  - Limb operation [Unknown]
  - Vascular operation [Unknown]
  - Limb operation [Unknown]
  - Foot deformity [Unknown]
  - Sinus tarsi syndrome [Unknown]
  - Fatigue [Unknown]
  - Headache [Unknown]
  - Back pain [Unknown]
  - Nausea [Unknown]
  - Nausea [Unknown]
  - Vomiting [Unknown]
